FAERS Safety Report 21690770 (Version 1)
Quarter: 2022Q4

REPORT INFORMATION
  Report Type: Report from Study
  Country: US (occurrence: US)
  Receive Date: 20221207
  Receipt Date: 20221207
  Transmission Date: 20230112
  Serious: No
  Sender: FDA-Public Use
  Company Number: US-INCYTE CORPORATION-2022IN011359

PATIENT

DRUGS (1)
  1. JAKAFI [Suspect]
     Active Substance: RUXOLITINIB
     Indication: Essential thrombocythaemia
     Dosage: 10 MILLIGRAM, QD (I HAVE BEEN TAKING ONE TABLET A DAY FOR 5 DAYS, I AM SUPPOSED TO TAKE IT TWICE A D
     Route: 048

REACTIONS (6)
  - Sensitive skin [Unknown]
  - Intentional product use issue [Unknown]
  - Erythema [Unknown]
  - Skin discolouration [Unknown]
  - Rash [Unknown]
  - Off label use [Unknown]
